FAERS Safety Report 10210096 (Version 1)
Quarter: 2014Q2

REPORT INFORMATION
  Report Type: Spontaneous
  Country: GB (occurrence: GB)
  Receive Date: 20140602
  Receipt Date: 20140602
  Transmission Date: 20141212
  Serious: No
  Sender: FDA-Public Use
  Company Number: GB-JNJFOC-20140512986

PATIENT
  Age: 46 Year
  Sex: Male

DRUGS (2)
  1. FENTANYL [Suspect]
     Indication: ARTHRALGIA
     Route: 062
  2. FENTANYL [Suspect]
     Indication: ARTHRALGIA
     Route: 062

REACTIONS (2)
  - Leukoderma [Not Recovered/Not Resolved]
  - Drug administered at inappropriate site [Not Recovered/Not Resolved]
